FAERS Safety Report 11174704 (Version 1)
Quarter: 2015Q2

REPORT INFORMATION
  Report Type: Spontaneous
  Country: JP (occurrence: JP)
  Receive Date: 20150609
  Receipt Date: 20150609
  Transmission Date: 20150821
  Serious: Yes (Hospitalization)
  Sender: FDA-Public Use
  Company Number: JP-009507513-1505JPN015546

PATIENT
  Age: 50 Year
  Sex: Male

DRUGS (4)
  1. VEGETAMIN [Suspect]
     Active Substance: CHLORPROMAZINE HYDROCHLORIDE\PHENOBARBITAL\PROMETHAZINE HYDROCHLORIDE
     Dosage: SEVERAL TABLETS
     Route: 048
     Dates: start: 20150526, end: 20150526
  2. STRATTERA [Suspect]
     Active Substance: ATOMOXETINE HYDROCHLORIDE
     Dosage: 56 TABLETS, UNK
     Route: 048
     Dates: start: 20150526, end: 20150526
  3. BELSOMRA [Suspect]
     Active Substance: SUVOREXANT
     Dosage: 12 TABLETS, QD
     Route: 048
     Dates: start: 20150526, end: 20150526
  4. RISPERIDONE. [Suspect]
     Active Substance: RISPERIDONE
     Dosage: 12 PACKAGES, UNK
     Route: 048
     Dates: start: 20150526, end: 20150526

REACTIONS (2)
  - Depressed level of consciousness [Recovered/Resolved]
  - Intentional overdose [Unknown]

NARRATIVE: CASE EVENT DATE: 20150526
